FAERS Safety Report 20644841 (Version 1)
Quarter: 2022Q1

REPORT INFORMATION
  Report Type: Spontaneous
  Country: US (occurrence: None)
  Receive Date: 20220328
  Receipt Date: 20220328
  Transmission Date: 20220423
  Serious: Yes (Life-Threatening, Disabling)
  Sender: FDA-Public Use
  Company Number: None

PATIENT
  Age: 51 Year
  Sex: Male
  Weight: 119.25 kg

DRUGS (1)
  1. ADMELOG [Suspect]
     Active Substance: INSULIN LISPRO
     Indication: Diabetes mellitus
     Dosage: OTHER QUANTITY : 70 INJECTION(S);?OTHER FREQUENCY : 6X PER DAY OR MORE;?
     Route: 058
     Dates: start: 20200930, end: 20220327

REACTIONS (5)
  - Product substitution issue [None]
  - Insurance issue [None]
  - Product complaint [None]
  - Diabetes mellitus inadequate control [None]
  - Drug ineffective [None]
